FAERS Safety Report 8951609 (Version 1)
Quarter: 2012Q4

REPORT INFORMATION
  Report Type: 
  Country: SE (occurrence: SE)
  Receive Date: 20121204
  Receipt Date: 20121204
  Transmission Date: 20130627
  Serious: Yes (Death)
  Sender: FDA-Public Use
  Company Number: SE-009507513-1211SWE009870

PATIENT
  Sex: Male

DRUGS (3)
  1. DEXACORTAL [Suspect]
     Indication: LEUKAEMIA
     Dosage: 1.5 mg, tid
     Route: 048
     Dates: start: 2010
  2. MABTHERA [Suspect]
  3. DEXAMETHASONE [Suspect]

REACTIONS (2)
  - Death [Fatal]
  - Dementia [Recovered/Resolved]
